FAERS Safety Report 9506488 (Version 2)
Quarter: 2013Q3

REPORT INFORMATION
  Report Type: Spontaneous
  Country: FR (occurrence: FR)
  Receive Date: 20130906
  Receipt Date: 20130916
  Transmission Date: 20140515
  Serious: Yes (Hospitalization)
  Sender: FDA-Public Use
  Company Number: PHHY2013FR098232

PATIENT
  Age: 66 Year
  Sex: Female

DRUGS (8)
  1. TEGRETOL [Suspect]
     Dosage: 400 MG, BID
     Route: 048
  2. TEGRETOL [Suspect]
     Dosage: UNK UKN, UNK
     Route: 048
  3. DEPAKINE CHRONO [Suspect]
     Dosage: 3250 MG (1750 MG IN THE MORNING AND 1500 MG IN THE EVENING), DAILY
     Route: 048
  4. KEPPRA [Concomitant]
     Dosage: 2 DF, BID
     Route: 048
  5. URBANYL [Concomitant]
     Dosage: 20 MG (5 MG IN THE MORNING AND MIDDAY AND 10 MG IN THE EVENING), DAILY
     Route: 048
  6. COAPROVEL [Concomitant]
     Dosage: UNK (25/300) MG, QD
     Route: 048
  7. ATENOLOL [Concomitant]
     Dosage: 50 MG, BID
  8. RILMENIDINE [Concomitant]
     Dosage: 1 MG, BID

REACTIONS (4)
  - Electrocardiogram QT prolonged [Recovered/Resolved]
  - Confusional state [Recovered/Resolved]
  - Ataxia [Recovered/Resolved]
  - Drug administration error [Recovered/Resolved]
